FAERS Safety Report 8326653-3 (Version None)
Quarter: 2012Q2

REPORT INFORMATION
  Report Type: 
  Country: None (occurrence: None)
  Receive Date: 20120501
  Receipt Date: 20120423
  Transmission Date: 20120825
  Serious: Yes (Hospitalization)
  Sender: FDA-Public Use
  Company Number: US-GENZYME-FABR-1002467

PATIENT
  Sex: Male

DRUGS (1)
  1. FABRAZYME [Suspect]
     Indication: FABRY'S DISEASE
     Dosage: UNK
     Route: 042
     Dates: start: 20120301

REACTIONS (5)
  - DYSPNOEA [None]
  - ABDOMINAL DISCOMFORT [None]
  - PNEUMOTHORAX [None]
  - CHEST PAIN [None]
  - HEADACHE [None]
